FAERS Safety Report 14447102 (Version 1)
Quarter: 2018Q1

REPORT INFORMATION
  Report Type: Spontaneous
  Country: GB (occurrence: GB)
  Receive Date: 20180126
  Receipt Date: 20180126
  Transmission Date: 20180509
  Serious: Yes (Hospitalization)
  Sender: FDA-Public Use
  Company Number: GB-MYLANLABS-V-DE-2007-1515

PATIENT
  Age: 19 Year
  Sex: Female

DRUGS (11)
  1. GENTAMICIN. [Suspect]
     Active Substance: GENTAMICIN
     Dosage: 240 MG, QD
     Dates: start: 2000
  2. MEROPENEM. [Suspect]
     Active Substance: MEROPENEM
     Indication: PSEUDOMONAS INFECTION
     Dosage: 1 G, UNK
     Dates: start: 200006, end: 2000
  3. MEROPENEM. [Suspect]
     Active Substance: MEROPENEM
     Dosage: 3 G, QD
  4. TOBRAMYCIN. [Suspect]
     Active Substance: TOBRAMYCIN
     Indication: PSEUDOMONAS INFECTION
     Dosage: 140 MG, UNK
     Dates: start: 2007, end: 2007
  5. TOBRAMYCIN. [Suspect]
     Active Substance: TOBRAMYCIN
     Dosage: 80 MG, UNK
  6. TOBRAMYCIN. [Suspect]
     Active Substance: TOBRAMYCIN
     Dosage: 420 MG, QD
     Route: 042
  7. AZITHROMYCIN ANHYDROUS. [Suspect]
     Active Substance: AZITHROMYCIN ANHYDROUS
     Indication: ANTIINFLAMMATORY THERAPY
     Dosage: UNK
  8. GENTAMICIN. [Suspect]
     Active Substance: GENTAMICIN
     Dosage: 360 MG, QD
     Dates: start: 200006
  9. MEROPENEM. [Suspect]
     Active Substance: MEROPENEM
     Dosage: 3 G, QD
     Dates: start: 200006
  10. GENTAMICIN. [Suspect]
     Active Substance: GENTAMICIN
     Indication: PSEUDOMONAS INFECTION
     Dosage: 120 MG, UNK
     Dates: start: 200006, end: 200006
  11. GENTAMICIN. [Suspect]
     Active Substance: GENTAMICIN
     Dosage: 120 MG, UNK
     Dates: start: 200006, end: 200006

REACTIONS (8)
  - Toxicity to various agents [Unknown]
  - Blood creatinine increased [Recovered/Resolved]
  - Balance disorder [Unknown]
  - Tinnitus [Unknown]
  - Dizziness [Unknown]
  - Off label use [Unknown]
  - Deafness neurosensory [Unknown]
  - Acute kidney injury [Recovered/Resolved]

NARRATIVE: CASE EVENT DATE: 2000
